FAERS Safety Report 21236379 (Version 2)
Quarter: 2022Q4

REPORT INFORMATION
  Report Type: Spontaneous
  Country: US (occurrence: US)
  Receive Date: 20220822
  Receipt Date: 20221025
  Transmission Date: 20230113
  Serious: Yes (Congenital Anomaly, Other)
  Sender: FDA-Public Use
  Company Number: US-CELGENE-163-20785-04120545

PATIENT

DRUGS (2)
  1. THALOMID [Suspect]
     Active Substance: THALIDOMIDE
     Indication: Product used for unknown indication
     Route: 065
  2. THALOMID [Suspect]
     Active Substance: THALIDOMIDE
     Dosage: FREQUENCY TEXT: N/A?DURATION TEXT : N/A
     Route: 065

REACTIONS (3)
  - Paternal exposure during pregnancy [Unknown]
  - Limb reduction defect [Unknown]
  - Abdominal wall anomaly [Unknown]

NARRATIVE: CASE EVENT DATE: 20050805
